FAERS Safety Report 8233490-7 (Version None)
Quarter: 2012Q1

REPORT INFORMATION
  Report Type: 
  Country: None (occurrence: None)
  Receive Date: 20120326
  Receipt Date: 20120312
  Transmission Date: 20120608
  Serious: Yes (Other)
  Sender: FDA-Public Use
  Company Number: US-JNJFOC-20070900062

PATIENT
  Sex: Male
  Weight: 93.9 kg

DRUGS (19)
  1. TMC125 [Suspect]
     Route: 048
  2. TMC125 [Suspect]
     Indication: HIV INFECTION
     Dosage: TEMPORARILY STOPPED
     Route: 048
     Dates: start: 20061214, end: 20070830
  3. FUZEON [Suspect]
     Indication: HIV INFECTION
     Route: 058
     Dates: start: 20061214
  4. MONOPRIL [Concomitant]
     Route: 065
     Dates: start: 20070726
  5. MEPRON [Concomitant]
     Route: 065
     Dates: start: 20070313
  6. LYRICA [Concomitant]
     Route: 065
     Dates: start: 20060724
  7. HIVID [Concomitant]
     Indication: HIV INFECTION
     Route: 048
     Dates: start: 20061214
  8. OXANDROLONE [Concomitant]
     Route: 065
     Dates: start: 20070110
  9. PREZISTA [Concomitant]
     Indication: HIV INFECTION
     Route: 048
     Dates: start: 20061214
  10. LOMOTIL [Concomitant]
     Indication: DIARRHOEA
     Dosage: DOSAGE REPORTED AS 1-2 EVERY 6 HOURS.
     Route: 065
     Dates: start: 20070820
  11. ZOVIRAX [Concomitant]
     Route: 065
     Dates: start: 20070817
  12. MULTIPLE VITAMINS [Concomitant]
     Route: 065
     Dates: start: 20061207
  13. DIFLUCAN [Concomitant]
     Route: 065
     Dates: start: 20070313
  14. CIALIS [Concomitant]
     Route: 065
     Dates: start: 20061207
  15. NORVIR [Suspect]
     Indication: HIV INFECTION
     Route: 048
     Dates: start: 20061214
  16. LOVAZA [Concomitant]
     Route: 065
     Dates: start: 20061207
  17. HYDROCORTISONE [Concomitant]
     Route: 065
     Dates: start: 20070710
  18. ANDROGEL [Concomitant]
     Route: 065
     Dates: start: 20070719
  19. VITAMIN B COMPLEX CAP [Concomitant]
     Route: 065
     Dates: start: 20061207

REACTIONS (2)
  - ASPARTATE AMINOTRANSFERASE INCREASED [None]
  - ALANINE AMINOTRANSFERASE INCREASED [None]
